FAERS Safety Report 8191998-7 (Version None)
Quarter: 2012Q1

REPORT INFORMATION
  Report Type: 
  Country: None (occurrence: None)
  Receive Date: 20120307
  Receipt Date: 20120301
  Transmission Date: 20120608
  Serious: Yes (Hospitalization)
  Sender: FDA-Public Use
  Company Number: PHHY2012CO016393

PATIENT
  Sex: Female

DRUGS (7)
  1. OMEPRAZOLE [Concomitant]
  2. SERTRALINE HYDROCHLORIDE [Concomitant]
     Indication: DEPRESSION
  3. ASPIRIN [Concomitant]
  4. FLUTICASONE PROPIONATE/SALMETEROL [Concomitant]
  5. METOPROLOL SUCCINATE [Concomitant]
  6. METFORMIN [Concomitant]
  7. ZOLEDRONOC ACID [Suspect]
     Indication: OSTEOPOROSIS
     Dosage: 5 MG,/100 ML
     Route: 042
     Dates: start: 20101201

REACTIONS (2)
  - CHRONIC OBSTRUCTIVE PULMONARY DISEASE [None]
  - MALAISE [None]
